FAERS Safety Report 22335563 (Version 2)
Quarter: 2023Q2

REPORT INFORMATION
  Report Type: Report from Study
  Country: US (occurrence: US)
  Receive Date: 20230518
  Receipt Date: 20230523
  Transmission Date: 20230722
  Serious: No
  Sender: FDA-Public Use
  Company Number: US-002147023-NVSC2023US111219

PATIENT
  Sex: Male

DRUGS (26)
  1. COSENTYX [Suspect]
     Active Substance: SECUKINUMAB
     Indication: Seborrhoeic dermatitis
     Dosage: 300 MG(2 PENS, AUTO INJECTOR)
     Route: 058
  2. COSENTYX [Suspect]
     Active Substance: SECUKINUMAB
     Indication: Psoriasis
  3. CLOBETASOL [Suspect]
     Active Substance: CLOBETASOL
     Indication: Seborrhoeic dermatitis
     Dosage: 0.05 %
     Route: 061
  4. CLOBETASOL [Suspect]
     Active Substance: CLOBETASOL
     Indication: Psoriasis
  5. FLUOCINONIDE [Suspect]
     Active Substance: FLUOCINONIDE
     Indication: Seborrhoeic dermatitis
     Dosage: 0.05 %(SOLUTION)
     Route: 061
  6. FLUOCINONIDE [Suspect]
     Active Substance: FLUOCINONIDE
     Indication: Psoriasis
  7. KETOCONAZOLE [Suspect]
     Active Substance: KETOCONAZOLE
     Indication: Seborrhoeic dermatitis
     Dosage: 2 %
     Route: 061
  8. KETOCONAZOLE [Suspect]
     Active Substance: KETOCONAZOLE
     Indication: Psoriasis
  9. MUPIROCIN [Suspect]
     Active Substance: MUPIROCIN
     Indication: Seborrhoeic dermatitis
     Dosage: 2 %
     Route: 061
  10. MUPIROCIN [Suspect]
     Active Substance: MUPIROCIN
     Indication: Psoriasis
  11. TRIAMCINOLONE ACETONIDE [Suspect]
     Active Substance: TRIAMCINOLONE ACETONIDE
     Indication: Seborrhoeic dermatitis
     Dosage: 0.1 %
     Route: 061
  12. TRIAMCINOLONE ACETONIDE [Suspect]
     Active Substance: TRIAMCINOLONE ACETONIDE
     Indication: Psoriasis
  13. CIPROFLOXACIN [Suspect]
     Active Substance: CIPROFLOXACIN
     Indication: Seborrhoeic dermatitis
     Dosage: 6 %(INTRATYMPANIC SUSPENSION)
     Route: 065
  14. CIPROFLOXACIN [Suspect]
     Active Substance: CIPROFLOXACIN
     Indication: Psoriasis
  15. ATORVASTATIN [Suspect]
     Active Substance: ATORVASTATIN
     Indication: Seborrhoeic dermatitis
     Dosage: 40 MG
     Route: 048
  16. ATORVASTATIN [Suspect]
     Active Substance: ATORVASTATIN
     Indication: Psoriasis
  17. GABAPENTIN [Suspect]
     Active Substance: GABAPENTIN
     Indication: Seborrhoeic dermatitis
     Dosage: 600 MG
     Route: 048
  18. GABAPENTIN [Suspect]
     Active Substance: GABAPENTIN
     Indication: Psoriasis
  19. METFORMIN [Suspect]
     Active Substance: METFORMIN HYDROCHLORIDE
     Indication: Seborrhoeic dermatitis
     Dosage: 500 MG
     Route: 048
  20. METFORMIN [Suspect]
     Active Substance: METFORMIN HYDROCHLORIDE
     Indication: Psoriasis
  21. NORTRIPTYLINE [Suspect]
     Active Substance: NORTRIPTYLINE
     Indication: Seborrhoeic dermatitis
     Dosage: 50 MG
     Route: 048
  22. NORTRIPTYLINE [Suspect]
     Active Substance: NORTRIPTYLINE
     Indication: Psoriasis
  23. ASPIRIN [Suspect]
     Active Substance: ASPIRIN
     Indication: Seborrhoeic dermatitis
     Dosage: UNK
     Route: 065
  24. ASPIRIN [Suspect]
     Active Substance: ASPIRIN
     Indication: Psoriasis
  25. T/SAL [Concomitant]
     Indication: Seborrhoeic dermatitis
     Dosage: UNK
     Route: 065
  26. T/SAL [Concomitant]
     Indication: Skin plaque

REACTIONS (2)
  - Product use in unapproved indication [Unknown]
  - Drug ineffective [Unknown]
